FAERS Safety Report 13060009 (Version 2)
Quarter: 2017Q1

REPORT INFORMATION
  Report Type: Spontaneous
  Country: DE (occurrence: DE)
  Receive Date: 20161223
  Receipt Date: 20170331
  Transmission Date: 20170428
  Serious: Yes (Other)
  Sender: FDA-Public Use
  Company Number: DE-APOPHARMA USA, INC.-2016AP016090

PATIENT
  Age: 8 Year
  Sex: Male

DRUGS (7)
  1. ALKERAN [Suspect]
     Active Substance: MELPHALAN
     Indication: EWING^S SARCOMA
     Dosage: 30 MG/M2, QD
     Route: 065
  2. THIOTEPA. [Concomitant]
     Active Substance: THIOTEPA
     Indication: STEM CELL TRANSPLANT
     Dosage: 10 MG/M2, QD
     Route: 065
  3. TOPOTECAN [Concomitant]
     Active Substance: TOPOTECAN HYDROCHLORIDE
     Indication: STEM CELL TRANSPLANT
     Dosage: 2 MG/M2, QD
     Route: 065
  4. FLUDARABINE [Concomitant]
     Active Substance: FLUDARABINE PHOSPHATE
     Indication: STEM CELL TRANSPLANT
     Dosage: 30 MG/M2, QD
     Route: 065
  5. ETOPOSIDE. [Concomitant]
     Active Substance: ETOPOSIDE
     Indication: STEM CELL TRANSPLANT
     Dosage: 1800 MG/M2, SINGLE
     Route: 065
  6. ALKERAN [Suspect]
     Active Substance: MELPHALAN
     Indication: STEM CELL TRANSPLANT
     Dosage: 35 MG/M2, SINGLE
     Route: 065
  7. TREOSULFAN [Concomitant]
     Active Substance: TREOSULFAN
     Indication: STEM CELL TRANSPLANT
     Dosage: 10 MG/M2, QD
     Route: 065

REACTIONS (1)
  - Viral haemorrhagic cystitis [Recovered/Resolved]
